FAERS Safety Report 6889413-6 (Version None)
Quarter: 2010Q3

REPORT INFORMATION
  Report Type: 
  Country: None (occurrence: None)
  Receive Date: 20100730
  Receipt Date: 20080215
  Transmission Date: 20110219
  Serious: No
  Sender: FDA-Public Use
  Company Number: US-PFIZER INC-2008015390

PATIENT
  Sex: Female

DRUGS (2)
  1. LIPITOR [Suspect]
  2. LEVAQUIN [Suspect]

REACTIONS (4)
  - JOINT STIFFNESS [None]
  - MYALGIA [None]
  - OEDEMA PERIPHERAL [None]
  - PAIN IN EXTREMITY [None]
